FAERS Safety Report 6514389-0 (Version None)
Quarter: 2009Q4

REPORT INFORMATION
  Report Type: 
  Country: None (occurrence: None)
  Receive Date: 20091223
  Receipt Date: 20091214
  Transmission Date: 20100525
  Serious: Yes (Hospitalization)
  Sender: FDA-Public Use
  Company Number: US-BIOGENIDEC-2009BI025467

PATIENT
  Sex: Male

DRUGS (2)
  1. TYSABRI [Suspect]
     Indication: MULTIPLE SCLEROSIS
     Route: 042
     Dates: start: 20070927
  2. TYSABRI [Suspect]
     Route: 042
     Dates: start: 20080602

REACTIONS (8)
  - ASTHENIA [None]
  - BACK DISORDER [None]
  - DIABETES MELLITUS [None]
  - DIABETIC COMPLICATION [None]
  - GAIT DISTURBANCE [None]
  - HYPOAESTHESIA [None]
  - LOSS OF CONSCIOUSNESS [None]
  - MULTIPLE SCLEROSIS RELAPSE [None]
